FAERS Safety Report 8237832-8 (Version None)
Quarter: 2012Q1

REPORT INFORMATION
  Report Type: 
  Country: None (occurrence: None)
  Receive Date: 20120326
  Receipt Date: 20120321
  Transmission Date: 20120608
  Serious: Yes (Hospitalization)
  Sender: FDA-Public Use
  Company Number: 131548

PATIENT
  Age: 85 Year
  Sex: Male
  Weight: 79.3795 kg

DRUGS (1)
  1. ACETYLCYSTEINE [Suspect]
     Indication: CHRONIC OBSTRUCTIVE PULMONARY DISEASE
     Dosage: ONGOING - ONE VIAL PER DAY VIA A NEBULIZER. A FEW MONTHS

REACTIONS (5)
  - HEART RATE INCREASED [None]
  - FEELING JITTERY [None]
  - DYSPEPSIA [None]
  - PNEUMONIA [None]
  - THROMBOSIS [None]
